FAERS Safety Report 10138321 (Version 3)
Quarter: 2014Q4

REPORT INFORMATION
  Report Type: Report from Study
  Country: JP (occurrence: JP)
  Receive Date: 20140429
  Receipt Date: 20141003
  Transmission Date: 20150528
  Serious: Yes (Death, Hospitalization)
  Sender: FDA-Public Use
  Company Number: JP-SA-2014SA054029

PATIENT
  Age: 50 Year
  Sex: Male
  Weight: 66.7 kg

DRUGS (18)
  1. POLAPREZINC [Concomitant]
     Indication: PROPHYLAXIS
     Dates: start: 20130515, end: 20130713
  2. CRAVIT [Concomitant]
     Active Substance: LEVOFLOXACIN
     Indication: PROPHYLAXIS
     Dates: start: 20130707, end: 20130708
  3. LACTOBACILLUS CASEI [Concomitant]
     Active Substance: LACTOBACILLUS CASEI
     Indication: PROPHYLAXIS
     Dates: start: 20130518, end: 20130713
  4. SLOW-K [Concomitant]
     Active Substance: POTASSIUM CHLORIDE
     Indication: PROPHYLAXIS
     Dates: start: 20130522, end: 20130703
  5. ZOVIRAX [Concomitant]
     Active Substance: ACYCLOVIR
     Indication: PROPHYLAXIS
     Dates: start: 20130622, end: 20130706
  6. FINIBAX [Concomitant]
     Active Substance: DORIPENEM MONOHYDRATE
     Indication: PROPHYLAXIS
     Dates: start: 20130701, end: 20130710
  7. ZYVOX [Concomitant]
     Active Substance: LINEZOLID
     Indication: PROPHYLAXIS
     Dates: start: 20130706, end: 20130710
  8. PREDNISOLONE. [Concomitant]
     Active Substance: PREDNISOLONE
     Dates: end: 20130713
  9. FUNGUARD [Concomitant]
     Active Substance: MICAFUNGIN SODIUM
     Indication: PROPHYLAXIS
     Dates: start: 20130701, end: 20130706
  10. ZANTAC [Concomitant]
     Active Substance: RANITIDINE HYDROCHLORIDE
     Indication: PROPHYLAXIS
     Dates: start: 20130515, end: 20130708
  11. HALIZON [Concomitant]
     Indication: PROPHYLAXIS
     Route: 048
     Dates: start: 20130710, end: 20130713
  12. THYMOGLOBULINE [Suspect]
     Active Substance: LAPINE T-LYMPHOCYTE IMMUNE GLOBULIN
     Indication: BONE MARROW CONDITIONING REGIMEN
     Route: 042
     Dates: start: 20130701, end: 20130702
  13. AMBISOME [Concomitant]
     Active Substance: AMPHOTERICIN B
     Indication: PROPHYLAXIS
     Dates: start: 20130707, end: 20130709
  14. ZYVOX [Concomitant]
     Active Substance: LINEZOLID
     Indication: PROPHYLAXIS
     Dates: start: 20130702, end: 20130703
  15. CRAVIT [Concomitant]
     Active Substance: LEVOFLOXACIN
     Indication: PROPHYLAXIS
     Dates: start: 20130518, end: 20130706
  16. NOVAMIN [Concomitant]
     Active Substance: PROCHLORPERAZINE MALEATE
     Indication: PROPHYLAXIS
     Dates: start: 20130515, end: 20130713
  17. URSO [Concomitant]
     Active Substance: URSODIOL
     Indication: PROPHYLAXIS
     Dates: start: 20130701, end: 20130713
  18. VANCOMYCIN [Concomitant]
     Active Substance: VANCOMYCIN
     Indication: PROPHYLAXIS
     Dates: start: 20130701, end: 20130713

REACTIONS (5)
  - Multi-organ failure [Fatal]
  - Systemic candida [Fatal]
  - Pyrexia [Recovering/Resolving]
  - Pain [Unknown]
  - Neutrophil count decreased [Fatal]

NARRATIVE: CASE EVENT DATE: 20130701
